FAERS Safety Report 5194445-2 (Version None)
Quarter: 2006Q4

REPORT INFORMATION
  Report Type: 
  Country: None (occurrence: None)
  Receive Date: 20061228
  Receipt Date: 20061101
  Transmission Date: 20070319
  Serious: Yes (Hospitalization)
  Sender: FDA-Public Use
  Company Number: JP-MERCK-0612USA01959

PATIENT
  Age: 79 Year
  Sex: Male

DRUGS (7)
  1. PRIMAXIN [Suspect]
     Indication: INFECTION
     Route: 042
     Dates: start: 20061019, end: 20061027
  2. DIFLUCAN [Concomitant]
     Route: 048
     Dates: start: 20061018
  3. BACTRIM [Concomitant]
     Route: 048
     Dates: start: 20061020, end: 20061023
  4. HABEKACIN [Concomitant]
     Route: 051
     Dates: start: 20061023, end: 20061025
  5. PROSTARMON F [Concomitant]
     Route: 042
     Dates: start: 20061024
  6. ISEPACIN [Concomitant]
     Route: 051
     Dates: start: 20061027
  7. MODACIN [Concomitant]
     Route: 042
     Dates: start: 20061028

REACTIONS (1)
  - HEPATIC FUNCTION ABNORMAL [None]
